FAERS Safety Report 8203528-1 (Version None)
Quarter: 2012Q1

REPORT INFORMATION
  Report Type: 
  Country: None (occurrence: None)
  Receive Date: 20120313
  Receipt Date: 20120301
  Transmission Date: 20120608
  Serious: No
  Sender: FDA-Public Use
  Company Number: US-BIOGENIDEC-2012BI008177

PATIENT
  Sex: Male

DRUGS (4)
  1. COPAXONE [Concomitant]
  2. NUVIGIL [Concomitant]
     Dates: end: 20120208
  3. TYSABRI [Suspect]
     Indication: MULTIPLE SCLEROSIS
     Route: 042
     Dates: start: 20070329, end: 20091123
  4. TYSABRI [Suspect]
     Route: 042
     Dates: start: 20110622

REACTIONS (4)
  - FALL [None]
  - GAIT DISTURBANCE [None]
  - FATIGUE [None]
  - INSOMNIA [None]
